FAERS Safety Report 19699115 (Version 2)
Quarter: 2021Q4

REPORT INFORMATION
  Report Type: Spontaneous
  Country: FR (occurrence: FR)
  Receive Date: 20210813
  Receipt Date: 20211116
  Transmission Date: 20220303
  Serious: Yes (Other)
  Sender: FDA-Public Use
  Company Number: FR-MYLANLABS-2021M1049669

PATIENT
  Sex: Female

DRUGS (1)
  1. BUPIVACAINE [Suspect]
     Active Substance: BUPIVACAINE
     Indication: Spinal anaesthesia
     Dosage: UNK

REACTIONS (2)
  - Drug ineffective [Unknown]
  - Maternal exposure during delivery [Recovered/Resolved]
